FAERS Safety Report 25869547 (Version 1)
Quarter: 2025Q3

REPORT INFORMATION
  Report Type: Spontaneous
  Country: US (occurrence: None)
  Receive Date: 20250930
  Receipt Date: 20250930
  Transmission Date: 20251020
  Serious: Yes (Other)
  Sender: FDA-CTU
  Company Number: None

PATIENT
  Age: 28 Year
  Sex: Female

DRUGS (2)
  1. CYANOCOBALAMIN\TOPIRAMATE [Suspect]
     Active Substance: CYANOCOBALAMIN\TOPIRAMATE
     Indication: Weight decreased
     Dosage: OTHER FREQUENCY : QOD;?
     Route: 048
     Dates: start: 20250728, end: 20250816
  2. METFORMIN [Suspect]
     Active Substance: METFORMIN HYDROCHLORIDE
     Dates: start: 20250813, end: 20250816

REACTIONS (4)
  - Confusional state [None]
  - Brain fog [None]
  - Anxiety [None]
  - Adverse drug reaction [None]

NARRATIVE: CASE EVENT DATE: 20250815
